FAERS Safety Report 5419996-4 (Version None)
Quarter: 2007Q3

REPORT INFORMATION
  Report Type: 
  Country: None (occurrence: None)
  Receive Date: 20070820
  Receipt Date: 20070813
  Transmission Date: 20080115
  Serious: Yes (Hospitalization)
  Sender: FDA-Public Use
  Company Number: US-BAYER-200712173BWH

PATIENT
  Age: 79 Year
  Sex: Female

DRUGS (5)
  1. NEXAVAR [Suspect]
     Indication: METASTATIC MALIGNANT MELANOMA
     Dosage: TOTAL DAILY DOSE: 800 MG  UNIT DOSE: 200 MG
     Route: 048
     Dates: start: 20070619, end: 20070621
  2. NEXAVAR [Suspect]
     Dosage: TOTAL DAILY DOSE: 800 MG  UNIT DOSE: 200 MG
     Route: 048
     Dates: start: 20070625, end: 20070708
  3. TEMODAR [Suspect]
     Indication: METASTATIC MALIGNANT MELANOMA
     Dates: start: 20070501, end: 20070519
  4. TEMODAR [Suspect]
     Dates: start: 20070601, end: 20070601
  5. TEMODAR [Suspect]
     Dates: end: 20070708

REACTIONS (14)
  - BLOOD POTASSIUM INCREASED [None]
  - DECREASED APPETITE [None]
  - DEHYDRATION [None]
  - DIZZINESS [None]
  - DYSGEUSIA [None]
  - ERYTHEMA [None]
  - FATIGUE [None]
  - NAUSEA [None]
  - PALMAR-PLANTAR ERYTHRODYSAESTHESIA SYNDROME [None]
  - PARAESTHESIA [None]
  - PERIPHERAL COLDNESS [None]
  - PRURITUS [None]
  - PULMONARY OEDEMA [None]
  - SWELLING [None]
